FAERS Safety Report 7292931-2 (Version None)
Quarter: 2011Q1

REPORT INFORMATION
  Report Type: 
  Country: None (occurrence: None)
  Receive Date: 20110215
  Receipt Date: 20110210
  Transmission Date: 20110831
  Serious: Yes (Death)
  Sender: FDA-Public Use
  Company Number: US-SOLVAY-00211001088

PATIENT
  Age: 26674 Day
  Sex: Male
  Weight: 109.09 kg

DRUGS (1)
  1. ANDROGEL [Suspect]
     Indication: PRODUCT USED FOR UNKNOWN INDICATION
     Dosage: DAILY DOSE:  UNKNOWN, VIA PUMP
     Route: 062
     Dates: end: 20100101

REACTIONS (3)
  - CEREBROVASCULAR ACCIDENT [None]
  - GASTRIC CANCER [None]
  - MYOCARDIAL INFARCTION [None]
